FAERS Safety Report 7125014-2 (Version None)
Quarter: 2010Q4

REPORT INFORMATION
  Report Type: 
  Country: None (occurrence: None)
  Receive Date: 20101129
  Receipt Date: 20101124
  Transmission Date: 20110411
  Serious: Yes (Other)
  Sender: FDA-Public Use
  Company Number: BE-PFIZER INC-2010156699

PATIENT

DRUGS (2)
  1. SUTENT [Suspect]
     Route: 048
  2. DOPAMINE [Concomitant]

REACTIONS (1)
  - PARKINSONISM [None]
